FAERS Safety Report 5998113-6 (Version None)
Quarter: 2008Q4

REPORT INFORMATION
  Report Type: 
  Country: None (occurrence: None)
  Receive Date: 20081213
  Receipt Date: 20080619
  Transmission Date: 20090506
  Serious: No
  Sender: FDA-Public Use
  Company Number: US-AMGEN-KDL288405

PATIENT
  Sex: Male

DRUGS (8)
  1. ENBREL [Suspect]
     Indication: RHEUMATOID ARTHRITIS
  2. TRAMADOL HCL [Concomitant]
  3. IRON [Concomitant]
  4. LISINOPRIL [Concomitant]
  5. ATENOLOL [Concomitant]
  6. PERCOCET [Concomitant]
  7. AMBIEN [Concomitant]
  8. METHADONE HCL [Concomitant]

REACTIONS (1)
  - ARTHROPATHY [None]
